FAERS Safety Report 14157258 (Version 1)
Quarter: 2017Q4

REPORT INFORMATION
  Report Type: Spontaneous
  Country: IT (occurrence: IT)
  Receive Date: 20171103
  Receipt Date: 20171103
  Transmission Date: 20180321
  Serious: Yes (Hospitalization)
  Sender: FDA-Public Use
  Company Number: IT-PFIZER INC-2017461809

PATIENT
  Age: 69 Year
  Sex: Male
  Weight: 82 kg

DRUGS (6)
  1. UROREC [Suspect]
     Active Substance: SILODOSIN
     Dosage: 4 MG, DAILY
     Route: 065
  2. AVODART [Suspect]
     Active Substance: DUTASTERIDE
     Dosage: 0.5 MG, DAILY
     Route: 065
  3. ACETYLSALICYLIC ACID W/ASCORBIC ACID [Suspect]
     Active Substance: ACETAMINOPHEN\ASCORBIC ACID
     Indication: NASOPHARYNGITIS
     Dosage: 500 MG, DAILY
     Route: 048
     Dates: start: 20171023, end: 20171023
  4. TERAZOSIN HYDROCHLORIDE. [Suspect]
     Active Substance: TERAZOSIN HYDROCHLORIDE
     Dosage: 5 MG, DAILY
     Route: 048
  5. RAMIPRIL. [Suspect]
     Active Substance: RAMIPRIL
     Dosage: 5 MG, DAILY
     Route: 048
  6. BISOPROLOL FUMARATE. [Suspect]
     Active Substance: BISOPROLOL FUMARATE
     Dosage: 2.5 MG, DAILY
     Route: 048

REACTIONS (4)
  - Swelling [Recovering/Resolving]
  - Tongue oedema [Recovering/Resolving]
  - Dyspnoea [Recovering/Resolving]
  - Oedema mouth [Recovering/Resolving]

NARRATIVE: CASE EVENT DATE: 20171023
